FAERS Safety Report 14030562 (Version 1)
Quarter: 2017Q4

REPORT INFORMATION
  Report Type: Spontaneous
  Country: GR (occurrence: GR)
  Receive Date: 20171002
  Receipt Date: 20171002
  Transmission Date: 20180321
  Serious: Yes (Other)
  Sender: FDA-Public Use
  Company Number: GR-ROCHE-2000484

PATIENT
  Age: 42 Year
  Sex: Female

DRUGS (1)
  1. RANIBIZUMAB. [Suspect]
     Active Substance: RANIBIZUMAB
     Indication: CHOROIDAL NEOVASCULARISATION
     Route: 050

REACTIONS (5)
  - Therapeutic response decreased [Unknown]
  - Choroidal neovascularisation [Recovering/Resolving]
  - Subretinal fibrosis [Recovering/Resolving]
  - Retinal cyst [Recovering/Resolving]
  - Subretinal fluid [Recovering/Resolving]
